FAERS Safety Report 11540447 (Version 1)
Quarter: 2015Q3

REPORT INFORMATION
  Report Type: Spontaneous
  Country: US (occurrence: US)
  Receive Date: 20150923
  Receipt Date: 20150923
  Transmission Date: 20151125
  Serious: No
  Sender: FDA-Public Use
  Company Number: US-BEH-2014046638

PATIENT
  Age: 56 Year
  Sex: Female
  Weight: 75 kg

DRUGS (50)
  1. TEGRETOL [Concomitant]
     Active Substance: CARBAMAZEPINE
  2. PROCHLORPERAZINE. [Concomitant]
     Active Substance: PROCHLORPERAZINE
  3. PROMETHAZINE [Concomitant]
     Active Substance: PROMETHAZINE\PROMETHAZINE HYDROCHLORIDE
  4. TOPAMAX [Concomitant]
     Active Substance: TOPIRAMATE
  5. ATIVAN [Concomitant]
     Active Substance: LORAZEPAM
  6. ZITHROMAX [Concomitant]
     Active Substance: AZITHROMYCIN DIHYDRATE
  7. RELPAX [Concomitant]
     Active Substance: ELETRIPTAN HYDROBROMIDE
  8. TRAMADOL. [Concomitant]
     Active Substance: TRAMADOL
  9. MIRALAX [Concomitant]
     Active Substance: POLYETHYLENE GLYCOL 3350
  10. NYSTATIN. [Concomitant]
     Active Substance: NYSTATIN
  11. SONATA [Concomitant]
     Active Substance: ZALEPLON
  12. DRONABINOL. [Concomitant]
     Active Substance: DRONABINOL
  13. CHLORPROMAZINE. [Concomitant]
     Active Substance: CHLORPROMAZINE
  14. XYLOCAINE [Concomitant]
     Active Substance: LIDOCAINE HYDROCHLORIDE
  15. COPAXONE [Concomitant]
     Active Substance: GLATIRAMER ACETATE
  16. SINGULAIR [Concomitant]
     Active Substance: MONTELUKAST SODIUM
  17. LYRICA [Concomitant]
     Active Substance: PREGABALIN
  18. IBUPROFEN. [Concomitant]
     Active Substance: IBUPROFEN
  19. MELATONIN [Concomitant]
     Active Substance: MELATONIN
  20. MUCINEX ER [Concomitant]
  21. VALIUM [Concomitant]
     Active Substance: DIAZEPAM
  22. TIZANIDINE. [Concomitant]
     Active Substance: TIZANIDINE
  23. CYANOCOBALAMIN. [Concomitant]
     Active Substance: CYANOCOBALAMIN
  24. CITALOPRAM [Concomitant]
     Active Substance: CITALOPRAM HYDROBROMIDE
  25. MORPHINE [Concomitant]
     Active Substance: MORPHINE
  26. RANITIDINE [Concomitant]
     Active Substance: RANITIDINE\RANITIDINE HYDROCHLORIDE
  27. NAMENDA [Concomitant]
     Active Substance: MEMANTINE HYDROCHLORIDE
  28. CRANBERRY. [Concomitant]
     Active Substance: CRANBERRY
  29. PRIVIGEN [Suspect]
     Active Substance: HUMAN IMMUNOGLOBULIN G
     Indication: MULTIPLE SCLEROSIS
     Route: 042
  30. EFFEXOR XR [Concomitant]
     Active Substance: VENLAFAXINE HYDROCHLORIDE
  31. BUTORPHANOL [Concomitant]
     Active Substance: BUTORPHANOL
  32. MAALOX ANTACID [Concomitant]
     Active Substance: ALUMINUM HYDROXIDE\DIMETHICONE\MAGNESIUM HYDROXIDE
  33. NEURONTIN [Concomitant]
     Active Substance: GABAPENTIN
  34. MECLIZINE [Concomitant]
     Active Substance: MECLIZINE\MECLIZINE HYDROCHLORIDE
  35. BACLOFEN. [Concomitant]
     Active Substance: BACLOFEN
  36. FROVA [Concomitant]
     Active Substance: FROVATRIPTAN SUCCINATE
  37. MARINOL [Concomitant]
     Active Substance: DRONABINOL
  38. NEXIUM [Concomitant]
     Active Substance: ESOMEPRAZOLE MAGNESIUM
  39. DHEA ACETATE [Concomitant]
     Active Substance: PRASTERONE ACETATE
  40. ACETAMINOPHEN. [Concomitant]
     Active Substance: ACETAMINOPHEN
  41. SODIUM CHLORIDE. [Concomitant]
     Active Substance: SODIUM CHLORIDE
  42. CEFTIN [Concomitant]
     Active Substance: CEFUROXIME AXETIL
  43. AMITRIPTYLINE [Concomitant]
     Active Substance: AMITRIPTYLINE
  44. PRIVIGEN [Suspect]
     Active Substance: HUMAN IMMUNOGLOBULIN G
     Indication: IMMUNODEFICIENCY COMMON VARIABLE
     Route: 042
  45. DIPHENHYDRAMINE. [Concomitant]
     Active Substance: DIPHENHYDRAMINE
  46. HEPARIN [Concomitant]
     Active Substance: HEPARIN SODIUM
  47. NORMAL SALINE [Concomitant]
     Active Substance: SODIUM CHLORIDE
  48. EPIPEN [Concomitant]
     Active Substance: EPINEPHRINE
  49. ZOFRAN [Concomitant]
     Active Substance: ONDANSETRON HYDROCHLORIDE
  50. ALBUTEROL. [Concomitant]
     Active Substance: ALBUTEROL

REACTIONS (1)
  - Sinusitis [Unknown]

NARRATIVE: CASE EVENT DATE: 20141101
